FAERS Safety Report 14611975 (Version 2)
Quarter: 2018Q2

REPORT INFORMATION
  Report Type: Spontaneous
  Country: US (occurrence: US)
  Receive Date: 20180308
  Receipt Date: 20180615
  Transmission Date: 20180711
  Serious: No
  Sender: FDA-Public Use
  Company Number: US-ASTRAZENECA-2016SF24567

PATIENT
  Age: 3851 Week
  Sex: Female

DRUGS (4)
  1. TUDORZA PRESSAIR [Suspect]
     Active Substance: ACLIDINIUM BROMIDE
     Indication: CHRONIC OBSTRUCTIVE PULMONARY DISEASE
     Route: 055
  2. ADVAIR HFA [Concomitant]
     Active Substance: FLUTICASONE PROPIONATE\SALMETEROL XINAFOATE
     Indication: CHRONIC OBSTRUCTIVE PULMONARY DISEASE
     Route: 055
  3. TUDORZA PRESSAIR [Suspect]
     Active Substance: ACLIDINIUM BROMIDE
     Indication: RESPIRATORY DISORDER
     Route: 055
  4. TUDORZA PRESSAIR [Suspect]
     Active Substance: ACLIDINIUM BROMIDE
     Indication: LUNG NEOPLASM MALIGNANT
     Route: 055

REACTIONS (5)
  - Device issue [Unknown]
  - Device malfunction [Unknown]
  - Cataract [Unknown]
  - Drug dose omission [Not Recovered/Not Resolved]
  - Device failure [Unknown]
